FAERS Safety Report 20686809 (Version 2)
Quarter: 2022Q2

REPORT INFORMATION
  Report Type: Spontaneous
  Country: US (occurrence: US)
  Receive Date: 20220407
  Receipt Date: 20220616
  Transmission Date: 20220720
  Serious: No
  Sender: FDA-Public Use
  Company Number: US-SANOFI-01048031

PATIENT
  Age: 49 Year
  Sex: Female

DRUGS (2)
  1. DUPIXENT [Suspect]
     Active Substance: DUPILUMAB
     Indication: Dermatitis atopic
     Dosage: 600 MG, 1X
     Route: 058
     Dates: start: 20220228, end: 20220228
  2. DUPIXENT [Suspect]
     Active Substance: DUPILUMAB
     Dosage: 300 MG, QOW
     Route: 058
     Dates: start: 202203

REACTIONS (5)
  - Abdominal discomfort [Unknown]
  - Diarrhoea [Unknown]
  - Pruritus [Recovering/Resolving]
  - Dry eye [Recovering/Resolving]
  - Eye pruritus [Recovering/Resolving]

NARRATIVE: CASE EVENT DATE: 20220101
